FAERS Safety Report 26163137 (Version 1)
Quarter: 2025Q4

REPORT INFORMATION
  Report Type: Spontaneous
  Country: EU (occurrence: EU)
  Receive Date: 20251216
  Receipt Date: 20251216
  Transmission Date: 20260118
  Serious: Yes (Hospitalization)
  Sender: SANDOZ
  Company Number: None

PATIENT
  Age: 24 Year
  Sex: Female
  Weight: 90 kg

DRUGS (8)
  1. ACETAMINOPHEN [Suspect]
     Active Substance: ACETAMINOPHEN
     Indication: Poisoning deliberate
     Dosage: 24 G. 1 {TOTAL}
     Route: 048
     Dates: start: 20251118, end: 20251118
  2. DEXTROMETHORPHAN HYDROBROMIDE [Concomitant]
     Active Substance: DEXTROMETHORPHAN HYDROBROMIDE
     Indication: Cough
     Dosage: UNK
     Route: 048
  3. LOXAPINE SUCCINATE [Concomitant]
     Active Substance: LOXAPINE SUCCINATE
     Indication: Mental disorder
     Dosage: 1 DF, QD (MORNING AND EVENING)
     Route: 048
  4. OXAZEPAM [Concomitant]
     Active Substance: OXAZEPAM
     Indication: Borderline personality disorder
     Dosage: 1 DF, 1 {ASNECESSARY} (IF NECESSARY)
     Route: 048
  5. SERTRALINE [Concomitant]
     Active Substance: SERTRALINE HYDROCHLORIDE
     Dosage: 100 MG, QD (2 CAPSULES IN THE MORNING)
     Route: 048
     Dates: start: 20251030, end: 20251106
  6. SERTRALINE [Concomitant]
     Active Substance: SERTRALINE HYDROCHLORIDE
     Dosage: 150 MG, QD (2 CAPSULES IN THE MORNING, 1 CAPSULE IN THE EVENING)
     Route: 048
     Dates: start: 20251023, end: 20251030
  7. SERTRALINE [Concomitant]
     Active Substance: SERTRALINE HYDROCHLORIDE
     Indication: Borderline personality disorder
     Dosage: 50 MG, QD (1 CAPSULE IN THE MORNING)
     Route: 048
     Dates: start: 20251106
  8. VENLAFAXINE [Concomitant]
     Active Substance: VENLAFAXINE HYDROCHLORIDE
     Indication: Borderline personality disorder
     Dosage: 75 MG, QD (75 MG LE MATIN)
     Route: 048

REACTIONS (4)
  - Poisoning deliberate [Recovered/Resolved]
  - Hypertransaminasaemia [Recovering/Resolving]
  - Blood alkaline phosphatase increased [Not Recovered/Not Resolved]
  - Abdominal pain [Recovered/Resolved]

NARRATIVE: CASE EVENT DATE: 20251118
